FAERS Safety Report 5921656-8 (Version None)
Quarter: 2008Q3

REPORT INFORMATION
  Report Type: 
  Country: None (occurrence: None)
  Receive Date: 20080909
  Receipt Date: 20070907
  Transmission Date: 20090109
  Serious: Yes (Hospitalization)
  Sender: FDA-Public Use
  Company Number: 163-20785-07010760

PATIENT
  Age: 62 Year
  Sex: Female
  Weight: 112.0385 kg

DRUGS (11)
  1. THALOMID [Suspect]
     Indication: MULTIPLE MYELOMA
     Dosage: 50 MG, M-W-F, ORAL ; 200MG, X 28 DAYS, ORAL
     Route: 048
     Dates: start: 20021124, end: 20030612
  2. THALOMID [Suspect]
     Indication: MULTIPLE MYELOMA
     Dosage: 50 MG, M-W-F, ORAL ; 200MG, X 28 DAYS, ORAL
     Route: 048
     Dates: start: 20030612
  3. PREDNISONE [Suspect]
     Indication: MULTIPLE MYELOMA
     Dosage: 25 MG, EVERY OTHER DAY, ORAL
     Route: 048
     Dates: start: 20030612
  4. ASPIRIN [Concomitant]
  5. CALCIUM (CALCIUM) [Concomitant]
  6. COZAAR [Concomitant]
  7. DARVOCET-N 100 [Concomitant]
  8. FERROUS SULFATE TAB [Concomitant]
  9. FOSAMAX [Concomitant]
  10. HYDROCHLOROTHIAZIDE [Concomitant]
  11. SYNTHROID [Concomitant]

REACTIONS (2)
  - PERIORBITAL CELLULITIS [None]
  - SINUSITIS [None]
